FAERS Safety Report 11492753 (Version 4)
Quarter: 2015Q4

REPORT INFORMATION
  Report Type: Spontaneous
  Country: US (occurrence: US)
  Receive Date: 20150911
  Receipt Date: 20151119
  Transmission Date: 20160304
  Serious: Yes (Hospitalization)
  Sender: FDA-Public Use
  Company Number: US-ROCHE-1632243

PATIENT
  Age: 82 Year
  Sex: Male
  Weight: 91.71 kg

DRUGS (1)
  1. ESBRIET [Suspect]
     Active Substance: PIRFENIDONE
     Indication: IDIOPATHIC PULMONARY FIBROSIS
     Dosage: 2403 MG DAILY; 3 CAPSULES THREE TIMES A DAY
     Route: 048
     Dates: start: 20150514

REACTIONS (6)
  - Cardiac failure congestive [Unknown]
  - Nausea [Recovering/Resolving]
  - Dyspnoea [Unknown]
  - Spinal fracture [Unknown]
  - Malaise [Unknown]
  - Cardiac disorder [Unknown]

NARRATIVE: CASE EVENT DATE: 20150907
